FAERS Safety Report 9859456 (Version 3)
Quarter: 2014Q4

REPORT INFORMATION
  Report Type: Spontaneous
  Country: US (occurrence: US)
  Receive Date: 20140131
  Receipt Date: 20141007
  Transmission Date: 20150529
  Serious: Yes (Hospitalization, Other)
  Sender: FDA-Public Use
  Company Number: US-009507513-1401USA014808

PATIENT
  Sex: Female
  Weight: 112.2 kg

DRUGS (1)
  1. NUVARING [Suspect]
     Active Substance: ETHINYL ESTRADIOL\ETONOGESTREL
     Indication: PRODUCT USED FOR UNKNOWN INDICATION
     Dosage: 0.12-0.015 MG/24HR INSERT 1 RING VAGINALLY FOR 3 WEEKS THEN 1 WEEK OFF
     Route: 067
     Dates: start: 20120222

REACTIONS (9)
  - Acute sinusitis [Unknown]
  - Abdominal pain [Unknown]
  - Somnolence [Unknown]
  - Drug ineffective [Unknown]
  - Conjunctivitis [Unknown]
  - Migraine [Unknown]
  - Contusion [Unknown]
  - Pain in extremity [Unknown]
  - Pulmonary embolism [Unknown]

NARRATIVE: CASE EVENT DATE: 20120223
